FAERS Safety Report 8049631-0 (Version None)
Quarter: 2012Q1

REPORT INFORMATION
  Report Type: 
  Country: None (occurrence: None)
  Receive Date: 20120111
  Receipt Date: 20110729
  Transmission Date: 20120608
  Serious: Yes (Other)
  Sender: FDA-Public Use
  Company Number: 2011-05848

PATIENT
  Age: 54 Year
  Sex: Female

DRUGS (1)
  1. TUBERSOL [Suspect]
     Indication: TUBERCULIN TEST
     Dosage: I.D.,FOREARM L
     Dates: start: 20110712, end: 20110712

REACTIONS (3)
  - PAIN IN EXTREMITY [None]
  - EXTENSIVE SWELLING OF VACCINATED LIMB [None]
  - LYMPHADENOPATHY [None]
